FAERS Safety Report 11318443 (Version 2)
Quarter: 2015Q3

REPORT INFORMATION
  Report Type: Report from Study
  Country: RS (occurrence: RS)
  Receive Date: 20150728
  Receipt Date: 20150804
  Transmission Date: 20151125
  Serious: Yes (Hospitalization)
  Sender: FDA-Public Use
  Company Number: RS-AMGEN-2012-0019

PATIENT
  Age: 55 Year
  Sex: Male
  Weight: 115 kg

DRUGS (13)
  1. SODIUM CHLORIDE. [Concomitant]
     Active Substance: SODIUM CHLORIDE
     Indication: FLUID REPLACEMENT
     Dosage: 500 MG, BID
     Route: 042
     Dates: start: 20120104, end: 20120104
  2. ACYCLOVIR                          /00587301/ [Concomitant]
     Active Substance: ACYCLOVIR
     Indication: ANTIVIRAL PROPHYLAXIS
     Dosage: 400 MG, BID
     Route: 048
     Dates: start: 20120104
  3. ASPIRIN PROTECT [Concomitant]
     Active Substance: ASPIRIN
     Indication: ANTICOAGULANT THERAPY
     Dosage: 100 MG, QD
     Route: 048
     Dates: start: 20120104
  4. FRAXIPARIN                         /00889603/ [Concomitant]
     Indication: THROMBOSIS PROPHYLAXIS
     Dosage: 2850 IU, BID
     Route: 058
     Dates: start: 20120104, end: 20120105
  5. CARFILZOMIB [Suspect]
     Active Substance: CARFILZOMIB
     Indication: PLASMA CELL MYELOMA
     Dosage: 20 MUG/M2, PER CHEMO REGIM
     Route: 042
     Dates: start: 20120104, end: 20120104
  6. ASPIRIN PROTECT [Concomitant]
     Active Substance: ASPIRIN
     Indication: ANTIPLATELET THERAPY
  7. LANSUL [Concomitant]
     Indication: PROPHYLAXIS
     Dosage: 15 MG, QD
     Route: 048
     Dates: start: 20120104
  8. PRILENAP                           /00574901/ [Concomitant]
     Indication: ANGINA PECTORIS
     Dosage: 30 MG, QD
     Route: 048
     Dates: start: 20120104, end: 20120105
  9. ONDASAN [Concomitant]
     Active Substance: ONDANSETRON HYDROCHLORIDE
     Indication: PROPHYLAXIS OF NAUSEA AND VOMITING
     Dosage: 8 MG, BID
     Route: 042
     Dates: start: 20120104, end: 20120105
  10. ACTRAPID [Concomitant]
     Active Substance: INSULIN HUMAN
     Indication: HYPERGLYCAEMIA
     Dosage: 12-14 IU, QD
     Route: 058
     Dates: start: 20120104, end: 20120105
  11. DEXAMETHASONE. [Suspect]
     Active Substance: DEXAMETHASONE
     Indication: PLASMA CELL MYELOMA
     Dosage: 40 MG, PER CHEMO REGIM
     Route: 065
     Dates: start: 20120104, end: 20120104
  12. INSULATARD                         /00646002/ [Concomitant]
     Active Substance: INSULIN NOS
     Indication: HYPERGLYCAEMIA
     Dosage: 22 IU, QD
     Route: 058
     Dates: start: 20120104, end: 20120105
  13. MAROCEN                            /00697201/ [Concomitant]
     Indication: ANTIBIOTIC PROPHYLAXIS
     Dosage: 500 MG, BID
     Route: 048
     Dates: start: 20120104

REACTIONS (1)
  - Acute myocardial infarction [Recovered/Resolved]

NARRATIVE: CASE EVENT DATE: 20120105
